FAERS Safety Report 7820264-1 (Version None)
Quarter: 2011Q4

REPORT INFORMATION
  Report Type: 
  Country: None (occurrence: None)
  Receive Date: 20111018
  Receipt Date: 20111017
  Transmission Date: 20120403
  Serious: Yes (Hospitalization)
  Sender: FDA-Public Use
  Company Number: IT-ROCHE-1000254

PATIENT
  Sex: Female

DRUGS (10)
  1. DOXORUBICIN HCL [Suspect]
     Indication: PRODUCT USED FOR UNKNOWN INDICATION
     Route: 042
     Dates: start: 20110219, end: 20110314
  2. METHOTREXATE [Concomitant]
     Route: 037
     Dates: start: 20110322, end: 20110916
  3. VINCRISTINE [Suspect]
     Indication: PRODUCT USED FOR UNKNOWN INDICATION
     Route: 065
     Dates: start: 20110219, end: 20110314
  4. ASPIRIN [Concomitant]
  5. CYCLOPHOSPHAMIDE [Suspect]
     Indication: PRODUCT USED FOR UNKNOWN INDICATION
     Route: 042
     Dates: start: 20110219, end: 20110314
  6. DOXORUBICIN HCL [Suspect]
     Route: 042
  7. RABEPRAZOLE SODIUM [Concomitant]
  8. MABTHERA [Suspect]
     Indication: NON-HODGKIN'S LYMPHOMA
     Route: 042
     Dates: start: 20110219, end: 20110314
  9. PREDNISONE [Concomitant]
     Route: 048
  10. ESCITALOPRAM [Concomitant]

REACTIONS (3)
  - LEUKOPENIA [None]
  - MUCOSAL INFLAMMATION [None]
  - URINARY TRACT INFECTION [None]
